FAERS Safety Report 5016815-5 (Version None)
Quarter: 2006Q2

REPORT INFORMATION
  Report Type: 
  Country: None (occurrence: None)
  Receive Date: 20060602
  Receipt Date: 20060221
  Transmission Date: 20061013
  Serious: No
  Sender: FDA-Public Use
  Company Number: US-GLAXOSMITHKLINE-A0594616A

PATIENT
  Age: 52 Year
  Sex: Female

DRUGS (4)
  1. AMOXICILLIN + CLAVULANATE POTASSIUM [Suspect]
     Indication: URINARY TRACT INFECTION
     Dosage: 875MG TWICE PER DAY
     Route: 048
     Dates: start: 20051001
  2. LIPITOR [Concomitant]
  3. NEXIUM [Concomitant]
  4. VIOXX [Concomitant]

REACTIONS (4)
  - HAEMATURIA [None]
  - HAEMORRHAGE URINARY TRACT [None]
  - RENAL PAIN [None]
  - URINARY TRACT INFECTION [None]
